FAERS Safety Report 8262892-8 (Version None)
Quarter: 2012Q2

REPORT INFORMATION
  Report Type: 
  Country: None (occurrence: None)
  Receive Date: 20120405
  Receipt Date: 20120329
  Transmission Date: 20120825
  Serious: Yes (Other)
  Sender: FDA-Public Use
  Company Number: MX-GLAXOSMITHKLINE-A0972382A

PATIENT
  Sex: Female

DRUGS (3)
  1. MAGNESIUM VALPROATE [Concomitant]
     Indication: EPILEPSY
     Dosage: 600MGD PER DAY
     Route: 048
     Dates: start: 20100501
  2. PAROXETINE HCL [Suspect]
     Indication: EPILEPSY
     Dosage: 20MGD PER DAY
     Route: 048
     Dates: start: 20120313, end: 20120314
  3. LAMOTRGINE [Concomitant]
     Indication: EPILEPSY
     Dosage: 200MGD PER DAY
     Route: 048

REACTIONS (5)
  - HYPOTONIA [None]
  - CONVULSION [None]
  - DYSPNOEA [None]
  - SYNCOPE [None]
  - FALL [None]
